FAERS Safety Report 5331738-X (Version None)
Quarter: 2007Q2

REPORT INFORMATION
  Report Type: 
  Country: None (occurrence: None)
  Receive Date: 20070517
  Receipt Date: 20070508
  Transmission Date: 20071010
  Serious: Yes (Hospitalization)
  Sender: FDA-Public Use
  Company Number: 2007BI008073

PATIENT
  Age: 38 Year
  Sex: Female

DRUGS (6)
  1. AVONEX [Suspect]
     Indication: MULTIPLE SCLEROSIS
     Dosage: IM
     Route: 030
  2. AVONEX [Suspect]
     Indication: MULTIPLE SCLEROSIS
     Dosage: 30 UG; QW; IM
     Route: 030
  3. CALCIUM CHLORIDE [Concomitant]
  4. VITAMIN D [Concomitant]
  5. FOLGARD [Concomitant]
  6. ASPIRIN [Concomitant]

REACTIONS (2)
  - BLADDER OPERATION [None]
  - HYSTERECTOMY [None]
